FAERS Safety Report 7829728-8 (Version None)
Quarter: 2011Q4

REPORT INFORMATION
  Report Type: 
  Country: None (occurrence: None)
  Receive Date: 20111018
  Receipt Date: 20111006
  Transmission Date: 20120403
  Serious: Yes (Hospitalization)
  Sender: FDA-Public Use
  Company Number: 2011S1005769

PATIENT
  Age: 40 Year
  Sex: Female
  Weight: 63.9572 kg

DRUGS (8)
  1. SODIUM PHOSPHATE MONOBASIC MONOHYDRATE AND NAPO4 DIBASIC ANHYDROUS [Suspect]
     Indication: LAPAROSCOPIC SURGERY
     Dosage: 90 ML;TOTAL;PO
     Route: 048
     Dates: start: 20080608, end: 20080608
  2. MYCIFRADIN [Concomitant]
  3. COLACE [Concomitant]
  4. PREPARATION H [Concomitant]
  5. REGLAN [Concomitant]
  6. FLAGYL /00012502/ [Concomitant]
  7. ANUSOL HC [Concomitant]
  8. COMPAZINE [Concomitant]

REACTIONS (8)
  - RENAL FAILURE ACUTE [None]
  - ANXIETY [None]
  - HYPOVOLAEMIA [None]
  - RENAL TUBULAR NECROSIS [None]
  - DEHYDRATION [None]
  - POST PROCEDURAL COMPLICATION [None]
  - ANAEMIA [None]
  - INAPPROPRIATE SCHEDULE OF DRUG ADMINISTRATION [None]
